FAERS Safety Report 14971489 (Version 1)
Quarter: 2018Q2

REPORT INFORMATION
  Report Type: Spontaneous
  Country: US (occurrence: US)
  Receive Date: 20180604
  Receipt Date: 20180604
  Transmission Date: 20180711
  Serious: No
  Sender: FDA-Public Use
  Company Number: US-TEIKOKU PHARMA USA-TPU2018-00354

PATIENT
  Sex: Female
  Weight: 72.64 kg

DRUGS (4)
  1. HYDROCODONE BITARTRATE AND ACETAMINOPHEN [Concomitant]
     Active Substance: ACETAMINOPHEN\HYDROCODONE BITARTRATE
     Indication: BACK PAIN
     Dosage: 10-325 MG 1-2 TABLETS DAILY (AS NEEDED)
     Dates: start: 2018
  2. MELOXICAM. [Concomitant]
     Active Substance: MELOXICAM
     Indication: BACK PAIN
     Route: 048
  3. LIDOCAINE PATCH [Suspect]
     Active Substance: LIDOCAINE
     Indication: BACK PAIN
     Dosage: TAKES 1 PATCH, CUTS IN HALF, APPLIES HALF PATCH THE LONG WAY ONE ABOVE THE OTHER TO LOWER BACK, FOR
     Route: 061
     Dates: start: 2018
  4. GABAPENTIN. [Concomitant]
     Active Substance: GABAPENTIN
     Route: 048

REACTIONS (1)
  - Prescription drug used without a prescription [Unknown]
